FAERS Safety Report 8256371-1 (Version None)
Quarter: 2012Q2

REPORT INFORMATION
  Report Type: 
  Country: None (occurrence: None)
  Receive Date: 20120402
  Receipt Date: 20120402
  Transmission Date: 20120825
  Serious: Yes (Hospitalization)
  Sender: FDA-Public Use
  Company Number: None

PATIENT
  Sex: Male
  Weight: 106.3 kg

DRUGS (3)
  1. CALCIUM CARBONATE [Suspect]
     Dosage: 2 UNIT
  2. ZOMETA [Suspect]
     Dosage: 4 MG
  3. COUMADIN [Concomitant]

REACTIONS (6)
  - WEIGHT INCREASED [None]
  - RENAL FAILURE ACUTE [None]
  - URINE FLOW DECREASED [None]
  - DYSPNOEA [None]
  - HYPOCALCAEMIA [None]
  - OEDEMA PERIPHERAL [None]
